FAERS Safety Report 9660296 (Version 2)
Quarter: 2013Q4

REPORT INFORMATION
  Report Type: Spontaneous
  Country: US (occurrence: US)
  Receive Date: 20131031
  Receipt Date: 20131031
  Transmission Date: 20140711
  Serious: No
  Sender: FDA-Public Use
  Company Number: US-PURDUE-USA-2010-0055288

PATIENT
  Sex: Female

DRUGS (1)
  1. OXYCONTIN TABLETS [Suspect]
     Indication: PRODUCT USED FOR UNKNOWN INDICATION
     Dosage: 160 MG, BID
     Route: 048
     Dates: start: 20100416, end: 20100516

REACTIONS (1)
  - Medication residue present [Recovered/Resolved]
